FAERS Safety Report 23471812 (Version 2)
Quarter: 2024Q1

REPORT INFORMATION
  Report Type: Report from Study
  Country: DE (occurrence: DE)
  Receive Date: 20240202
  Receipt Date: 20240227
  Transmission Date: 20240410
  Serious: Yes (Other)
  Sender: FDA-Public Use
  Company Number: DE-PFM-2024-00536

PATIENT
  Sex: Male
  Weight: 80 kg

DRUGS (23)
  1. BRAFTOVI [Suspect]
     Active Substance: ENCORAFENIB
     Indication: Colorectal cancer
     Dosage: 300 MG, DAILY
     Route: 048
     Dates: start: 20200728
  2. BRAFTOVI [Suspect]
     Active Substance: ENCORAFENIB
     Dosage: 75 MG/DAY
     Route: 065
  3. CETUXIMAB [Suspect]
     Active Substance: CETUXIMAB
     Indication: Colorectal cancer
     Dosage: 250 MG/M2, WEEKLY
     Route: 042
     Dates: start: 20200728
  4. CETUXIMAB [Suspect]
     Active Substance: CETUXIMAB
     Dosage: 480 MG/M2, WEEKLY
     Route: 065
  5. CARVEDILOL [Concomitant]
     Active Substance: CARVEDILOL
     Indication: Hypertension
     Dosage: 25 MG, DAILY
     Route: 048
  6. SIMVAZET [Concomitant]
     Indication: Coronary arterial stent insertion
     Dosage: 10.1 MG, DAILY
     Route: 048
  7. PREGABALIN [Concomitant]
     Active Substance: PREGABALIN
     Indication: Polyneuropathy
     Dosage: 75 MG, BID (2/DAY)
     Route: 048
  8. CANDESARTAN CILEXETIL [Concomitant]
     Active Substance: CANDESARTAN CILEXETIL
     Indication: Hypertension
     Dosage: 32 MG, DAILY
     Route: 048
  9. TAMSULOSIN [Concomitant]
     Active Substance: TAMSULOSIN
     Indication: Hyperplasia
     Dosage: 0.4 MG, DAILY
     Route: 048
  10. LEVOTHYROXINE SODIUM [Concomitant]
     Active Substance: LEVOTHYROXINE SODIUM
     Indication: Hypothyroidism
     Dosage: 150 UG, DAILY
     Route: 048
     Dates: end: 20230703
  11. LEVOTHYROXINE SODIUM [Concomitant]
     Active Substance: LEVOTHYROXINE SODIUM
     Dosage: 125 UG, DAILY
     Route: 048
     Dates: start: 20230704
  12. EDOXABAN TOSYLATE [Concomitant]
     Active Substance: EDOXABAN TOSYLATE
     Indication: Coronary arterial stent insertion
     Dosage: 30 MG, DAILY
     Route: 048
     Dates: start: 2000
  13. ACETYLCYSTEINE SODIUM [Concomitant]
     Active Substance: ACETYLCYSTEINE SODIUM
     Dosage: 600 MG, PRN
     Route: 048
     Dates: start: 20230418, end: 20230424
  14. Calcium Brause [Concomitant]
     Indication: Diagnostic procedure
     Dosage: 1 DAILY
     Route: 048
     Dates: start: 20230712, end: 20230715
  15. CLEMASTINE [Concomitant]
     Active Substance: CLEMASTINE
     Indication: Prophylaxis
     Dosage: 2 MG, CYCLICAL
     Route: 042
     Dates: start: 20200728
  16. Dexamethason-mp ampoules [Concomitant]
     Indication: Prophylaxis
     Dosage: 8 MG, CYCLICAL
     Route: 042
     Dates: start: 20200728
  17. HUMAN RED BLOOD CELL [Concomitant]
     Active Substance: HUMAN RED BLOOD CELL
     Dosage: 2 DAILY
     Route: 042
     Dates: start: 20210211, end: 20210211
  18. HUMAN RED BLOOD CELL [Concomitant]
     Active Substance: HUMAN RED BLOOD CELL
     Dosage: 1 DAILY
     Route: 042
     Dates: start: 20210223, end: 20210223
  19. HUMAN RED BLOOD CELL [Concomitant]
     Active Substance: HUMAN RED BLOOD CELL
     Dosage: 1 DAILY
     Route: 042
     Dates: start: 20210302, end: 20210302
  20. DERMATOP [Concomitant]
     Active Substance: PREDNICARBATE
     Dosage: 1 DAILY
     Route: 062
     Dates: start: 20210629, end: 20220131
  21. MINOCYCLINE [Concomitant]
     Active Substance: MINOCYCLINE HYDROCHLORIDE
     Dosage: 50 MG, BID (2/DAY)
     Route: 048
     Dates: start: 20211028, end: 2021
  22. BETAGALEN [Concomitant]
     Dosage: 1 DAILY
     Route: 062
     Dates: start: 20220201
  23. AMOXCLAV [AMOXICILLIN TRIHYDRATE;CLAVULANATE POTASSIUM] [Concomitant]
     Dosage: 875 MG, BID (2/DAY)
     Route: 048
     Dates: start: 20230418, end: 20230424

REACTIONS (2)
  - Blindness [Not Recovered/Not Resolved]
  - Visual acuity reduced [Recovered/Resolved]

NARRATIVE: CASE EVENT DATE: 20210323
